FAERS Safety Report 7061457-3 (Version None)
Quarter: 2010Q4

REPORT INFORMATION
  Report Type: 
  Country: None (occurrence: None)
  Receive Date: 20101026
  Receipt Date: 20101013
  Transmission Date: 20110411
  Serious: Yes (Death)
  Sender: FDA-Public Use
  Company Number: CA-ELI_LILLY_AND_COMPANY-CA201010002794

PATIENT
  Sex: Female

DRUGS (11)
  1. ZYPREXA [Suspect]
     Dosage: 2.5 MG, DAILY (1/D)
     Route: 065
     Dates: start: 20000207, end: 20000201
  2. LORAZEPAM [Concomitant]
     Dosage: 1 MG, AT 8AM AND 4PM
     Route: 065
  3. LORAZEPAM [Concomitant]
     Dosage: 2 MG, Q.H.S.
     Route: 065
  4. SYNTHROID [Concomitant]
     Dosage: 0.15 MG, Q.H.S
     Route: 048
  5. FLURBIPROFEN [Concomitant]
     Dosage: 100 MG, 2/D
     Route: 048
  6. CONJUGATED ESTROGENS [Concomitant]
     Dosage: 0.625 MG, DAILY (1/D)
     Route: 048
  7. VITAMIN E [Concomitant]
     Dosage: UNK, DAILY (1/D)
     Route: 065
  8. VITAMIN D [Concomitant]
     Dosage: 400 MG, DAILY (1/D)
     Route: 048
  9. CALCIUM [Concomitant]
     Dosage: 1.5 MG, DAILY (1/D)
     Route: 048
  10. FLONASE [Concomitant]
     Dosage: 1 PUFF, DAILY (1/D)
     Route: 045
  11. BENZODIAZEPINE DERIVATIVES [Concomitant]
     Dosage: UNK, UNKNOWN
     Route: 065

REACTIONS (6)
  - DEATH [None]
  - DIABETES MELLITUS [None]
  - HYPERTENSION [None]
  - THERAPEUTIC RESPONSE DECREASED [None]
  - URINARY TRACT INFECTION [None]
  - WEIGHT INCREASED [None]
